FAERS Safety Report 7909879-X (Version None)
Quarter: 2011Q4

REPORT INFORMATION
  Report Type: 
  Country: None (occurrence: None)
  Receive Date: 20111111
  Receipt Date: 20111109
  Transmission Date: 20120403
  Serious: Yes (Other)
  Sender: FDA-Public Use
  Company Number: JP-BAYER-2011-109009

PATIENT
  Age: 63 Year
  Sex: Male
  Weight: 54 kg

DRUGS (4)
  1. IMIDAPRIL HYDROCHLORIDE [Concomitant]
     Dosage: UNK
     Route: 048
  2. ASPIRIN [Suspect]
     Dosage: UNK
     Route: 048
     Dates: end: 20050101
  3. PRAVASTATIN [Concomitant]
     Dosage: UNK
     Route: 048
  4. ALLOPURINOL [Concomitant]
     Dosage: UNK
     Route: 048

REACTIONS (2)
  - URINARY BLADDER HAEMORRHAGE [None]
  - BLADDER CANCER [None]
